FAERS Safety Report 18624119 (Version 1)
Quarter: 2020Q4

REPORT INFORMATION
  Report Type: Spontaneous
  Country: US (occurrence: US)
  Receive Date: 20201216
  Receipt Date: 20201216
  Transmission Date: 20210114
  Serious: No
  Sender: FDA-Public Use
  Company Number: US-PFIZER INC-2020494059

PATIENT
  Age: 61 Year
  Sex: Female

DRUGS (5)
  1. NEOMYCIN SULFATE. [Suspect]
     Active Substance: NEOMYCIN SULFATE
     Dosage: UNK
  2. BACITRACIN. [Suspect]
     Active Substance: BACITRACIN
     Dosage: UNK
  3. BENZYL ALCOHOL [Suspect]
     Active Substance: BENZYL ALCOHOL
     Dosage: UNK
  4. PROPOLIS [Suspect]
     Active Substance: PROPOLIS WAX
     Dosage: UNK
  5. HYDROQUINONE. [Suspect]
     Active Substance: HYDROQUINONE
     Dosage: UNK

REACTIONS (1)
  - Drug hypersensitivity [Unknown]
